FAERS Safety Report 17071505 (Version 2)
Quarter: 2019Q4

REPORT INFORMATION
  Report Type: Spontaneous
  Country: IT (occurrence: IT)
  Receive Date: 20191125
  Receipt Date: 20191129
  Transmission Date: 20200122
  Serious: Yes (Other)
  Sender: FDA-Public Use
  Company Number: IT-SUN PHARMACEUTICAL INDUSTRIES LTD-2019RR-224861

PATIENT
  Age: 73 Year
  Sex: Male

DRUGS (12)
  1. SELEPARINA SOLUZIONE INIETTABILE [Suspect]
     Active Substance: NADROPARIN CALCIUM
     Indication: ANTICOAGULANT THERAPY
     Dosage: UNK
     Route: 065
     Dates: start: 20180110, end: 20180220
  2. NADROPARIN CALCIUM [Suspect]
     Active Substance: NADROPARIN CALCIUM
     Indication: ANTICOAGULANT THERAPY
     Dosage: 0.6 ML, BID
  3. SIMVASTATIN. [Suspect]
     Active Substance: SIMVASTATIN
     Indication: THROMBOSIS
     Dosage: UNK
     Route: 065
     Dates: start: 2001
  4. ENOXAPARIN [Suspect]
     Active Substance: ENOXAPARIN
     Indication: ANTICOAGULANT THERAPY
     Dosage: 2 MG/KG DAILY; DOSE: 0.4 ML/4000 IU BID (1 MG/KG TWICE DAILY)
     Route: 065
  5. TORADOL [Suspect]
     Active Substance: KETOROLAC TROMETHAMINE
     Indication: ABDOMINAL PAIN
     Dosage: 3 DOSES (), UNK
  6. NADROPARIN CALCIUM [Suspect]
     Active Substance: NADROPARIN CALCIUM
     Indication: THROMBOSIS
     Dosage: 0.6 ML, BID (1 INJECTION EVERY 12 HOURS)
     Dates: start: 20180110, end: 20180220
  7. ENOXAPARIN [Suspect]
     Active Substance: ENOXAPARIN
     Indication: THROMBOSIS
     Dosage: 0.4 ML/4000 IU BID (1 MG/KG TWICE DAILY) FOR 6
     Route: 065
  8. SELEPARINA SOLUZIONE INIETTABILE [Suspect]
     Active Substance: NADROPARIN CALCIUM
     Indication: THROMBOSIS
     Dosage: 0.6 ML, BID
     Route: 065
  9. SELEPARINA SOLUZIONE INIETTABILE [Suspect]
     Active Substance: NADROPARIN CALCIUM
     Dosage: UNK
  10. ESOMEPRAZOLE. [Suspect]
     Active Substance: ESOMEPRAZOLE MAGNESIUM
     Indication: THROMBOSIS
     Dosage: UNK
     Route: 065
  11. CLOPIDOGREL [Suspect]
     Active Substance: CLOPIDOGREL BISULFATE
     Indication: THROMBOSIS
     Dosage: UNK
     Route: 065
     Dates: start: 2001
  12. KETOROLAC [Suspect]
     Active Substance: KETOROLAC TROMETHAMINE
     Indication: ABDOMINAL PAIN
     Dosage: 3 DOSES
     Route: 065

REACTIONS (2)
  - Off label use [Unknown]
  - Drug-induced liver injury [Recovered/Resolved]
